FAERS Safety Report 6509363-4 (Version None)
Quarter: 2009Q4

REPORT INFORMATION
  Report Type: 
  Country: None (occurrence: None)
  Receive Date: 20091218
  Receipt Date: 20091218
  Transmission Date: 20100525
  Serious: No
  Sender: FDA-Public Use
  Company Number: None

PATIENT
  Age: 46 Year
  Sex: Male
  Weight: 86.1834 kg

DRUGS (2)
  1. TESTOPEL 150 - 450 NA [Suspect]
     Indication: DEPRESSION
     Dosage: 900 1 PER 4 MONTHS
     Dates: start: 20070601, end: 20070711
  2. TESTOPEL 150 - 450 NA [Suspect]
     Indication: FATIGUE
     Dosage: 900 1 PER 4 MONTHS
     Dates: start: 20070601, end: 20070711

REACTIONS (8)
  - ANXIETY [None]
  - CEREBROVASCULAR DISORDER [None]
  - GAIT DISTURBANCE [None]
  - HEADACHE [None]
  - MEMORY IMPAIRMENT [None]
  - MENTAL DISORDER [None]
  - OSTEOARTHRITIS [None]
  - VISUAL IMPAIRMENT [None]
